FAERS Safety Report 8874564 (Version 2)
Quarter: 2013Q2

REPORT INFORMATION
  Report Type: Spontaneous
  Country: US (occurrence: US)
  Receive Date: 20121030
  Receipt Date: 20130528
  Transmission Date: 20140414
  Serious: No
  Sender: FDA-Public Use
  Company Number: US-PFIZER INC-2012267304

PATIENT
  Sex: Female

DRUGS (2)
  1. CELEBREX [Suspect]
     Indication: ARTHRITIS
     Dosage: UNK
  2. CELECOXIB [Suspect]
     Indication: ARTHRITIS
     Dosage: UNK

REACTIONS (2)
  - Pain [Unknown]
  - Drug ineffective [Unknown]
